FAERS Safety Report 17200412 (Version 1)
Quarter: 2019Q4

REPORT INFORMATION
  Report Type: Spontaneous
  Country: US (occurrence: US)
  Receive Date: 20191226
  Receipt Date: 20191226
  Transmission Date: 20200122
  Serious: No
  Sender: FDA-Public Use
  Company Number: US-TEVA-2019-US-1156860

PATIENT
  Age: 36 Year
  Sex: Male

DRUGS (1)
  1. TADALAFIL TEVA [Suspect]
     Active Substance: TADALAFIL
     Route: 065

REACTIONS (2)
  - Drug screen positive [Unknown]
  - Product contamination [Unknown]

NARRATIVE: CASE EVENT DATE: 20190606
